FAERS Safety Report 19419382 (Version 1)
Quarter: 2021Q2

REPORT INFORMATION
  Report Type: Spontaneous
  Country: AR (occurrence: AR)
  Receive Date: 20210615
  Receipt Date: 20210615
  Transmission Date: 20210717
  Serious: Yes (Other)
  Sender: FDA-Public Use
  Company Number: AR-PFIZER INC-2021650383

PATIENT
  Age: 10 Year
  Sex: Female

DRUGS (1)
  1. GENOTROPIN [Suspect]
     Active Substance: SOMATROPIN
     Indication: TURNER^S SYNDROME
     Dosage: 1.5 TO 2 MG, 7 TIMES PER WEEK
     Dates: start: 20180705

REACTIONS (2)
  - Product prescribing error [Unknown]
  - Coeliac disease [Unknown]

NARRATIVE: CASE EVENT DATE: 20180705
